FAERS Safety Report 11831731 (Version 2)
Quarter: 2015Q4

REPORT INFORMATION
  Report Type: Spontaneous
  Country: IL (occurrence: IL)
  Receive Date: 20151214
  Receipt Date: 20151223
  Transmission Date: 20160305
  Serious: Yes (Death, Hospitalization, Other)
  Sender: FDA-Public Use
  Company Number: IL-BAYER-2015-484282

PATIENT
  Age: 65 Year
  Sex: Male

DRUGS (1)
  1. XOFIGO [Suspect]
     Active Substance: RADIUM RA-223 DICHLORIDE
     Dosage: 50 KGB/KG
     Dates: start: 20150920, end: 201512

REACTIONS (8)
  - Apathy [None]
  - Pulmonary embolism [None]
  - Thrombocytopenia [None]
  - Nausea [None]
  - General physical health deterioration [Fatal]
  - Anaemia [None]
  - Confusional state [None]
  - Vomiting [None]

NARRATIVE: CASE EVENT DATE: 201512
